FAERS Safety Report 7326738 (Version 4)
Quarter: 2014Q1

REPORT INFORMATION
  Report Type: Spontaneous
  Country: CA (occurrence: None)
  Receive Date: 20100302
  Receipt Date: 20140324
  Transmission Date: 20141002
  Serious: Yes (Disabling, Other)
  Sender: FDA-Public Use
  Company Number: 2010CA0005

PATIENT
  Age: 6 Year
  Sex: Male

DRUGS (1)
  1. ORFADIN [Suspect]
     Indication: TYROSINAEMIA
     Dosage: 0, 93 MG/KG (2 MG, 3 IN 1 D)
     Route: 048
     Dates: start: 20030820

REACTIONS (6)
  - Developmental delay [None]
  - Microcephaly [None]
  - Blood creatine phosphokinase increased [None]
  - Aspartate aminotransferase increased [None]
  - Urine delta aminolevulinate increased [None]
  - Myopathy [None]
